FAERS Safety Report 6130666-X (Version None)
Quarter: 2009Q1

REPORT INFORMATION
  Report Type: 
  Country: None (occurrence: None)
  Receive Date: 20090323
  Receipt Date: 20090306
  Transmission Date: 20090719
  Serious: Yes (Hospitalization)
  Sender: FDA-Public Use
  Company Number: 8040150

PATIENT
  Age: 24 Year
  Sex: Female

DRUGS (7)
  1. KEPPRA [Suspect]
     Indication: CONVULSION
     Dosage: 250 MG 1/D;
     Dates: start: 20080612, end: 20080615
  2. KEPPRA [Suspect]
     Indication: CONVULSION
     Dosage: 250 MG 2/D;
     Dates: start: 20080616, end: 20080619
  3. KEPPRA [Suspect]
     Indication: CONVULSION
     Dosage: 750 MG/D
     Dates: start: 20080620, end: 20080623
  4. KEPPRA [Suspect]
     Indication: CONVULSION
     Dosage: 500 MG 2/D;
     Dates: start: 20080624
  5. PARTUSISTEN [Concomitant]
  6. FOLICARD [Concomitant]
  7. MAGNESIUM SULFATE [Concomitant]

REACTIONS (5)
  - CAESAREAN SECTION [None]
  - DIZZINESS [None]
  - DRUG EXPOSURE DURING PREGNANCY [None]
  - FATIGUE [None]
  - PREMATURE LABOUR [None]
